FAERS Safety Report 16443603 (Version 1)
Quarter: 2019Q2

REPORT INFORMATION
  Report Type: Other
  Country: TN (occurrence: TN)
  Receive Date: 20190618
  Receipt Date: 20190618
  Transmission Date: 20190711
  Serious: Yes (Other)
  Sender: FDA-Public Use
  Company Number: TN-FDC LIMITED-2069290

PATIENT
  Age: 28 Year
  Sex: Female

DRUGS (1)
  1. CIPROFLOXACIN. [Suspect]
     Active Substance: CIPROFLOXACIN
     Indication: PYELONEPHRITIS ACUTE
     Route: 065
     Dates: start: 20110908

REACTIONS (1)
  - Stevens-Johnson syndrome [Recovered/Resolved]
